FAERS Safety Report 18452550 (Version 1)
Quarter: 2020Q4

REPORT INFORMATION
  Report Type: Spontaneous
  Country: US (occurrence: US)
  Receive Date: 20201102
  Receipt Date: 20201102
  Transmission Date: 20210114
  Serious: Yes (Other)
  Sender: FDA-Public Use
  Company Number: US-THE MENTHOLATUM COMPANY-2093512

PATIENT
  Age: 65 Year
  Sex: Male
  Weight: 96.36 kg

DRUGS (1)
  1. EQUATE COOL AND HEAT [Suspect]
     Active Substance: MENTHOL\METHYL SALICYLATE
     Route: 061

REACTIONS (3)
  - Burning sensation [Recovered/Resolved]
  - Hypersensitivity [Recovered/Resolved]
  - Pain of skin [Recovered/Resolved]

NARRATIVE: CASE EVENT DATE: 20201028
